FAERS Safety Report 15370473 (Version 1)
Quarter: 2018Q3

REPORT INFORMATION
  Report Type: Spontaneous
  Country: US (occurrence: US)
  Receive Date: 20180904
  Receipt Date: 20180904
  Transmission Date: 20181010
  Serious: Yes (Other)
  Sender: FDA-Public Use
  Company Number: None

PATIENT
  Age: 69 Year
  Sex: Male
  Weight: 141.75 kg

DRUGS (23)
  1. METFORMIN [Concomitant]
     Active Substance: METFORMIN HYDROCHLORIDE
  2. METAPROPOLOL [Concomitant]
  3. METAXALONE. [Concomitant]
     Active Substance: METAXALONE
  4. ALLERGY SHOT [Concomitant]
     Active Substance: UNSPECIFIED INGREDIENT
  5. ALLEGRA [Concomitant]
     Active Substance: FEXOFENADINE HYDROCHLORIDE
  6. SYNTHROID [Concomitant]
     Active Substance: LEVOTHYROXINE SODIUM
  7. EZETIMBE [Concomitant]
     Active Substance: EZETIMIBE
  8. DOXAZOSIN [Concomitant]
     Active Substance: DOXAZOSIN\DOXAZOSIN MESYLATE
  9. LEVALBUTEROL INHALATION SOLUTION 1.25MG/3ML [Suspect]
     Active Substance: LEVALBUTEROL
     Indication: CHRONIC OBSTRUCTIVE PULMONARY DISEASE
     Dosage: ?          QUANTITY:1 VIAL;OTHER ROUTE:VIA NEBULIZER?
     Dates: start: 20180830, end: 20180904
  10. INVOKANA [Concomitant]
     Active Substance: CANAGLIFLOZIN
  11. IRBESARTAN. [Concomitant]
     Active Substance: IRBESARTAN
  12. PREVACID [Concomitant]
     Active Substance: LANSOPRAZOLE
  13. MONTELUKAST [Concomitant]
     Active Substance: MONTELUKAST SODIUM
  14. FLONASE [Concomitant]
     Active Substance: FLUTICASONE PROPIONATE
  15. GLIPIZIDE. [Concomitant]
     Active Substance: GLIPIZIDE
  16. KCL [Concomitant]
     Active Substance: POTASSIUM CHLORIDE
  17. GLUCOSAMINE/CHONDROITIN [Concomitant]
  18. MULTIVITAMIN [Concomitant]
     Active Substance: VITAMINS
  19. JANUVIA [Concomitant]
     Active Substance: SITAGLIPTIN PHOSPHATE
  20. CELEBREX [Concomitant]
     Active Substance: CELECOXIB
  21. SPIRIVA BUMETANIDE [Concomitant]
  22. XOLAIR [Concomitant]
     Active Substance: OMALIZUMAB
  23. ASA [Concomitant]
     Active Substance: ASPIRIN

REACTIONS (4)
  - Mastication disorder [None]
  - Oral pain [None]
  - Product substitution issue [None]
  - Oral mucosal blistering [None]

NARRATIVE: CASE EVENT DATE: 20180901
